FAERS Safety Report 24718900 (Version 1)
Quarter: 2024Q4

REPORT INFORMATION
  Report Type: Spontaneous
  Country: US (occurrence: None)
  Receive Date: 20241210
  Receipt Date: 20241210
  Transmission Date: 20250115
  Serious: Yes (Hospitalization)
  Sender: Public
  Company Number: None

PATIENT
  Age: 24 Year
  Sex: Male
  Weight: 71.1 kg

DRUGS (2)
  1. UZEDY [Suspect]
     Active Substance: RISPERIDONE
     Indication: Bipolar disorder
     Dosage: OTHER FREQUENCY : X1;?
     Route: 058
     Dates: start: 20240820
  2. QUETIAPINE [Concomitant]
     Active Substance: QUETIAPINE
     Dates: start: 20240814, end: 20240820

REACTIONS (2)
  - Palpitations [None]
  - Sinus tachycardia [None]

NARRATIVE: CASE EVENT DATE: 20240820
